FAERS Safety Report 5537505-6 (Version None)
Quarter: 2007Q4

REPORT INFORMATION
  Report Type: 
  Country: None (occurrence: None)
  Receive Date: 20071207
  Receipt Date: 20071129
  Transmission Date: 20080405
  Serious: Yes (Disabling, Other)
  Sender: FDA-Public Use
  Company Number: US-ELI_LILLY_AND_COMPANY-US200710005414

PATIENT
  Sex: Male
  Weight: 83.673 kg

DRUGS (3)
  1. HUMATROPE [Suspect]
     Indication: GROWTH HORMONE DEFICIENCY
     Dosage: 3.2 MG, DAILY (1/D)
     Route: 058
     Dates: start: 20070123, end: 20071018
  2. PRILOSEC [Concomitant]
     Indication: GASTROOESOPHAGEAL REFLUX DISEASE
     Dosage: UNK, UNKNOWN
  3. ANTI-ASTHMATICS [Concomitant]
     Indication: ASTHMA
     Dosage: UNK, UNKNOWN
     Route: 055

REACTIONS (2)
  - EPIPHYSIOLYSIS [None]
  - LOWER LIMB DEFORMITY [None]
